FAERS Safety Report 5880701-9 (Version None)
Quarter: 2008Q3

REPORT INFORMATION
  Report Type: 
  Country: None (occurrence: None)
  Receive Date: 20080912
  Receipt Date: 20080604
  Transmission Date: 20090109
  Serious: No
  Sender: FDA-Public Use
  Company Number: US-ABBOTT-08P-163-0455592-00

PATIENT
  Sex: Female
  Weight: 68.1 kg

DRUGS (5)
  1. HUMIRA [Suspect]
     Indication: CROHN'S DISEASE
     Dosage: LOADING DOSE
     Route: 058
     Dates: start: 20080115
  2. HUMIRA [Suspect]
     Indication: COLITIS ULCERATIVE
     Route: 058
  3. HUMIRA [Suspect]
     Route: 058
  4. ORTHROPATCH [Concomitant]
     Indication: CONTRACEPTION
     Route: 061
     Dates: start: 20030101
  5. MESALAMINE [Concomitant]
     Indication: ABDOMINAL DISCOMFORT
     Route: 054

REACTIONS (4)
  - ABDOMINAL PAIN [None]
  - CROHN'S DISEASE [None]
  - DIARRHOEA HAEMORRHAGIC [None]
  - INFECTION [None]
